FAERS Safety Report 7621716-X (Version None)
Quarter: 2011Q3

REPORT INFORMATION
  Report Type: 
  Country: None (occurrence: None)
  Receive Date: 20110719
  Receipt Date: 20110715
  Transmission Date: 20111222
  Serious: Yes (Life-Threatening)
  Sender: FDA-Public Use
  Company Number: NZ-ASTRAZENECA-2011SE42282

PATIENT
  Age: 28 Year
  Sex: Female

DRUGS (4)
  1. VENLAFAXINE [Concomitant]
     Indication: BORDERLINE PERSONALITY DISORDER
  2. QUETIAPINE [Suspect]
     Indication: DEPRESSION
     Route: 048
  3. QUETIAPINE [Suspect]
     Indication: BORDERLINE PERSONALITY DISORDER
     Route: 048
  4. VENLAFAXINE [Concomitant]
     Indication: DEPRESSION

REACTIONS (1)
  - CONGESTIVE CARDIOMYOPATHY [None]
